FAERS Safety Report 4447135-5 (Version None)
Quarter: 2004Q3

REPORT INFORMATION
  Report Type: 
  Country: None (occurrence: None)
  Receive Date: 20040908
  Receipt Date: 20040908
  Transmission Date: 20050211
  Serious: Yes (Other)
  Sender: FDA-Public Use
  Company Number: None

PATIENT
  Sex: Female

DRUGS (2)
  1. CPT-11 50MG/M2 [Suspect]
     Indication: CARCINOMA
     Dosage: 50MG/M2 WKLY X 2
     Dates: start: 20040621, end: 20040826
  2. CISPLATIN [Suspect]
     Indication: CARCINOMA
     Dosage: 30MG/M2 WEEKLY
     Dates: start: 20040621, end: 20040628

REACTIONS (1)
  - MEDICATION ERROR [None]
